FAERS Safety Report 16112388 (Version 2)
Quarter: 2019Q2

REPORT INFORMATION
  Report Type: Spontaneous
  Country: US (occurrence: US)
  Receive Date: 20190325
  Receipt Date: 20190520
  Transmission Date: 20190711
  Serious: Yes (Other)
  Sender: FDA-Public Use
  Company Number: US-COOPERSURGICAL, INC.-US-2019CPS000780

PATIENT
  Age: 24 Year
  Sex: Female
  Weight: 82.99 kg

DRUGS (1)
  1. PARAGARD T 380A [Suspect]
     Active Substance: COPPER
     Indication: CONTRACEPTION
     Dosage: UNK
     Route: 015
     Dates: start: 20190116, end: 20190116

REACTIONS (7)
  - Complication of device insertion [Recovered/Resolved]
  - Pelvic discomfort [Recovered/Resolved]
  - Pain [Unknown]
  - Nausea [Unknown]
  - Procedural haemorrhage [Unknown]
  - Muscle spasms [Unknown]
  - Device difficult to use [Recovered/Resolved]

NARRATIVE: CASE EVENT DATE: 20190116
